FAERS Safety Report 5372789-9 (Version None)
Quarter: 2007Q2

REPORT INFORMATION
  Report Type: 
  Country: None (occurrence: None)
  Receive Date: 20070627
  Receipt Date: 20070615
  Transmission Date: 20071010
  Serious: Yes (Death, Other)
  Sender: FDA-Public Use
  Company Number: JP-PFIZER INC-2007041833

PATIENT
  Age: 84 Year
  Sex: Male

DRUGS (1)
  1. ZYVOX [Suspect]
     Indication: PNEUMONIA STAPHYLOCOCCAL
     Dosage: DAILY DOSE:1200MEQ
     Route: 042
     Dates: start: 20070515, end: 20070521

REACTIONS (2)
  - DEATH [None]
  - PLATELET COUNT DECREASED [None]
